FAERS Safety Report 14112312 (Version 4)
Quarter: 2018Q2

REPORT INFORMATION
  Report Type: Spontaneous
  Country: US (occurrence: US)
  Receive Date: 20171020
  Receipt Date: 20180627
  Transmission Date: 20180711
  Serious: Yes (Hospitalization)
  Sender: FDA-Public Use
  Company Number: US-ACTELION-A-US2017-161309

PATIENT
  Age: 86 Year
  Sex: Female

DRUGS (17)
  1. ADCIRCA [Concomitant]
     Active Substance: TADALAFIL
     Dosage: 40 MG, QD
     Route: 048
     Dates: start: 20171115
  2. OMEPRAZOLE. [Concomitant]
     Active Substance: OMEPRAZOLE
  3. AZITHROMYCIN ANHYDROUS. [Concomitant]
     Active Substance: AZITHROMYCIN ANHYDROUS
  4. POTASSIUM CHLORIDE. [Concomitant]
     Active Substance: POTASSIUM CHLORIDE
  5. CEFUROXIME. [Concomitant]
     Active Substance: CEFUROXIME
  6. SIMVASTATIN. [Concomitant]
     Active Substance: SIMVASTATIN
  7. DIAZEPAM. [Concomitant]
     Active Substance: DIAZEPAM
  8. ESTRADIOL. [Concomitant]
     Active Substance: ESTRADIOL
  9. METOPROLOL. [Concomitant]
     Active Substance: METOPROLOL
  10. HYDROCODONE BITARTRATE AND ACETAMINOPHEN [Concomitant]
     Active Substance: ACETAMINOPHEN\HYDROCODONE BITARTRATE
  11. OPSUMIT [Suspect]
     Active Substance: MACITENTAN
     Indication: PULMONARY ARTERIAL HYPERTENSION
     Dosage: 10 MG, QD
     Route: 048
     Dates: start: 20151008
  12. LEVOTHYROXIN [Concomitant]
     Active Substance: LEVOTHYROXINE
  13. MELATONIN [Concomitant]
     Active Substance: MELATONIN
  14. FUROSEMIDE. [Concomitant]
     Active Substance: FUROSEMIDE
  15. BENZONATATE. [Concomitant]
     Active Substance: BENZONATATE
  16. CEPHALEXIN. [Concomitant]
     Active Substance: CEPHALEXIN
  17. TIMOLOL. [Concomitant]
     Active Substance: TIMOLOL

REACTIONS (4)
  - Pneumonia [Recovered/Resolved]
  - Urinary tract infection [Unknown]
  - Upper respiratory tract infection [Unknown]
  - Cystitis [Unknown]

NARRATIVE: CASE EVENT DATE: 20180605
